FAERS Safety Report 6107170-8 (Version None)
Quarter: 2009Q1

REPORT INFORMATION
  Report Type: 
  Country: None (occurrence: None)
  Receive Date: 20090305
  Receipt Date: 20090305
  Transmission Date: 20090719
  Serious: Yes (Hospitalization)
  Sender: FDA-Public Use
  Company Number: None

PATIENT
  Sex: Male
  Weight: 102.0593 kg

DRUGS (2)
  1. LANOXIN [Suspect]
     Indication: NEOPLASM MALIGNANT
     Dosage: 1 TABLET DAILEY MOUTH
     Route: 048
  2. LANOXIN [Suspect]
     Indication: PALPITATIONS
     Dosage: 1 TABLET DAILEY MOUTH
     Route: 048

REACTIONS (3)
  - BALANCE DISORDER [None]
  - CHEST PAIN [None]
  - DIZZINESS [None]
